FAERS Safety Report 7964736-8 (Version None)
Quarter: 2011Q4

REPORT INFORMATION
  Report Type: 
  Country: None (occurrence: None)
  Receive Date: 20111208
  Receipt Date: 20111128
  Transmission Date: 20120403
  Serious: Yes (Other)
  Sender: FDA-Public Use
  Company Number: US-ELI_LILLY_AND_COMPANY-US201111008649

PATIENT
  Age: 14 Month
  Sex: Female

DRUGS (1)
  1. ZYPREXA [Suspect]
     Dosage: 5 MG, SINGLE

REACTIONS (5)
  - IRRITABILITY [None]
  - SOMNOLENCE [None]
  - DIARRHOEA [None]
  - DEHYDRATION [None]
  - MEDICATION ERROR [None]
